FAERS Safety Report 14562707 (Version 1)
Quarter: 2018Q1

REPORT INFORMATION
  Report Type: Spontaneous
  Country: US (occurrence: US)
  Receive Date: 20180221
  Receipt Date: 20180221
  Transmission Date: 20180509
  Serious: Yes (Other)
  Sender: FDA-Public Use
  Company Number: None

PATIENT
  Age: 44 Year
  Sex: Male

DRUGS (5)
  1. CHLORTHALIDONE. [Concomitant]
     Active Substance: CHLORTHALIDONE
  2. ATORVASTATIN [Concomitant]
     Active Substance: ATORVASTATIN
  3. LEVETIRACEMIDE [Concomitant]
  4. KCL [Concomitant]
     Active Substance: POTASSIUM CHLORIDE
  5. STELARA [Suspect]
     Active Substance: USTEKINUMAB
     Indication: PSORIASIS
     Dosage: FREQUENCY - Q 12 WEEKS
     Route: 058
     Dates: start: 2016

REACTIONS (2)
  - Seizure [None]
  - Disorientation [None]

NARRATIVE: CASE EVENT DATE: 20180202
